FAERS Safety Report 4873081-9 (Version None)
Quarter: 2006Q1

REPORT INFORMATION
  Report Type: 
  Country: None (occurrence: None)
  Receive Date: 20060104
  Receipt Date: 20060104
  Transmission Date: 20060701
  Serious: Yes (Death)
  Sender: FDA-Public Use
  Company Number: None

PATIENT
  Sex: Male
  Weight: 75.9 kg

DRUGS (1)
  1. SENSORCAINE [Suspect]
     Indication: INGUINAL HERNIA REPAIR
     Dosage: 100ML
     Dates: start: 20051122, end: 20051124

REACTIONS (9)
  - ABNORMAL BEHAVIOUR [None]
  - BACK PAIN [None]
  - BLOOD PRESSURE IMMEASURABLE [None]
  - BRADYCARDIA [None]
  - DYSPNOEA [None]
  - HYPERHIDROSIS [None]
  - LETHARGY [None]
  - MENTAL STATUS CHANGES [None]
  - PULSE ABSENT [None]
